FAERS Safety Report 7376118-0 (Version None)
Quarter: 2011Q1

REPORT INFORMATION
  Report Type: 
  Country: None (occurrence: None)
  Receive Date: 20110325
  Receipt Date: 20110321
  Transmission Date: 20110831
  Serious: Yes (Life-Threatening, Hospitalization)
  Sender: FDA-Public Use
  Company Number: PHHY2011DE23125

PATIENT
  Age: 74 Year
  Sex: Male

DRUGS (1)
  1. ENOXAPARIN SODIUM [Suspect]
     Indication: DEEP VEIN THROMBOSIS

REACTIONS (10)
  - APHASIA [None]
  - HEADACHE [None]
  - TRANSAMINASES INCREASED [None]
  - HEPARIN-INDUCED THROMBOCYTOPENIA [None]
  - HYPOPROTHROMBINAEMIA [None]
  - CEREBRAL THROMBOSIS [None]
  - HEPATIC FUNCTION ABNORMAL [None]
  - HEPATIC VEIN THROMBOSIS [None]
  - CEREBRAL HAEMORRHAGE [None]
  - INTRACRANIAL PRESSURE INCREASED [None]
